FAERS Safety Report 17299360 (Version 1)
Quarter: 2020Q1

REPORT INFORMATION
  Report Type: Spontaneous
  Country: US (occurrence: US)
  Receive Date: 20200122
  Receipt Date: 20200122
  Transmission Date: 20200409
  Serious: No
  Sender: FDA-Public Use
  Company Number: US-ALLERGAN-1911784US

PATIENT
  Age: 94 Year
  Sex: Female

DRUGS (1)
  1. RESTASIS [Suspect]
     Active Substance: CYCLOSPORINE
     Indication: VISUAL IMPAIRMENT
     Dosage: UNK
     Route: 047
     Dates: start: 20190301, end: 201903

REACTIONS (4)
  - Product dose omission [Unknown]
  - Wrong technique in product usage process [Unknown]
  - Product container issue [Unknown]
  - Off label use [Unknown]

NARRATIVE: CASE EVENT DATE: 201903
